FAERS Safety Report 18240197 (Version 1)
Quarter: 2020Q3

REPORT INFORMATION
  Report Type: Spontaneous
  Country: BE (occurrence: BE)
  Receive Date: 20200908
  Receipt Date: 20200908
  Transmission Date: 20201103
  Serious: Yes (Other)
  Sender: FDA-Public Use
  Company Number: BE-LUPIN PHARMACEUTICALS INC.-2020-05419

PATIENT
  Age: 32 Year
  Sex: Female

DRUGS (2)
  1. CEFTRIAXONE. [Suspect]
     Active Substance: CEFTRIAXONE
     Indication: PRODUCT USED FOR UNKNOWN INDICATION
     Dosage: UNK
     Route: 065
  2. CEFUROXIME AXETIL. [Suspect]
     Active Substance: CEFUROXIME AXETIL
     Indication: PRODUCT USED FOR UNKNOWN INDICATION
     Dosage: UNK (FIRST DOSE)
     Route: 048

REACTIONS (7)
  - Diarrhoea [Unknown]
  - Vomiting [Unknown]
  - Angioedema [Unknown]
  - Palpitations [Unknown]
  - Therapeutic product cross-reactivity [Unknown]
  - Dyspnoea [Unknown]
  - Urticaria [Unknown]
